FAERS Safety Report 5706645-0 (Version None)
Quarter: 2008Q2

REPORT INFORMATION
  Report Type: 
  Country: None (occurrence: None)
  Receive Date: 20080416
  Receipt Date: 20080407
  Transmission Date: 20081010
  Serious: Yes (Hospitalization, Other)
  Sender: FDA-Public Use
  Company Number: GB-SOLVAY-00307035244

PATIENT
  Age: 11 Year
  Sex: Female

DRUGS (8)
  1. FLOXACILLIN SODIUM [Concomitant]
     Indication: PROPHYLAXIS
     Dosage: DAILY DOSE: 1500 MILLIGRAM(S)
     Route: 048
     Dates: start: 19950101
  2. CREON [Suspect]
     Indication: PANCREATIC INSUFFICIENCY
     Dosage: DAILY DOSE:  UNKNOWN, AS NEEDED, MDU
     Route: 048
  3. MENADIOL SOD DIPHOS [Concomitant]
     Indication: MALNUTRITION
     Dosage: DAILY DOSE: 10 MILLIGRAM(S)
     Route: 048
  4. VITAMIN E [Concomitant]
     Indication: MALNUTRITION
     Dosage: DAILY DOSE: 75 INTERNATIONAL UNIT(S)
     Route: 048
  5. KETOVITE TABLETS [Concomitant]
     Indication: MALNUTRITION
     Dosage: DAILY DOSE: 3 DOSAGE FORM
     Route: 048
  6. KETOVITE LIQUID [Concomitant]
     Indication: MALNUTRITION
     Dosage: DAILY DOSE: 5 MILLILITRE(S)
     Route: 048
  7. SALBUTAMOL INHALER [Concomitant]
     Indication: BRONCHOSPASM
     Dosage: DAILY DOSE: 2 DOSAGE FORM
     Route: 055
  8. SALMETEROL + 250 FLUTICASONE INHALER [Concomitant]
     Indication: ASTHMA
     Dosage: DAILY DOSE: 4 DOSAGE FORM
     Route: 055

REACTIONS (1)
  - DISTAL INTESTINAL OBSTRUCTION SYNDROME [None]
